FAERS Safety Report 5498027-4 (Version None)
Quarter: 2007Q4

REPORT INFORMATION
  Report Type: 
  Country: None (occurrence: None)
  Receive Date: 20071018
  Receipt Date: 20060822
  Transmission Date: 20080405
  Serious: Yes (Hospitalization, Other)
  Sender: FDA-Public Use
  Company Number: 2006101956

PATIENT
  Age: 80 Year
  Sex: Female
  Weight: 68.0396 kg

DRUGS (2)
  1. NEURONTIN [Suspect]
     Indication: NEUROPATHY
     Dosage: 900 MG (300 MG, 3 IN 1 D)
  2. NEURONTIN [Suspect]
     Indication: PERIPHERAL VASCULAR DISORDER
     Dosage: 900 MG (300 MG, 3 IN 1 D)

REACTIONS (5)
  - CEREBROVASCULAR ACCIDENT [None]
  - CONFUSIONAL STATE [None]
  - DRUG INEFFECTIVE [None]
  - PAIN IN EXTREMITY [None]
  - SYNCOPE [None]
